FAERS Safety Report 20776847 (Version 1)
Quarter: 2022Q2

REPORT INFORMATION
  Report Type: Report from Study
  Country: US (occurrence: US)
  Receive Date: 20220502
  Receipt Date: 20220502
  Transmission Date: 20220721
  Serious: Yes (Other)
  Sender: FDA-Public Use
  Company Number: US-CELGENE-USA-20220201615

PATIENT
  Age: 72 Year
  Sex: Male
  Weight: 81.19 kg

DRUGS (2)
  1. REVLIMID [Suspect]
     Active Substance: LENALIDOMIDE
     Indication: Mantle cell lymphoma
     Dosage: 20 MILLIGRAM
     Route: 048
     Dates: start: 20211201
  2. REVLIMID [Suspect]
     Active Substance: LENALIDOMIDE
     Dosage: 20 MG CAPSULE-21/BTL
     Route: 048
     Dates: start: 20211201

REACTIONS (2)
  - Diarrhoea [Unknown]
  - Blood potassium decreased [Unknown]
